FAERS Safety Report 15438554 (Version 5)
Quarter: 2024Q3

REPORT INFORMATION
  Report Type: Report from Study
  Country: CA (occurrence: CA)
  Receive Date: 20180928
  Receipt Date: 20240723
  Transmission Date: 20241016
  Serious: Yes (Hospitalization)
  Sender: ROCHE
  Company Number: CA-002147023-PHHY2015CA072899

PATIENT
  Age: 60 Year
  Sex: Female

DRUGS (84)
  1. XOLAIR [Suspect]
     Active Substance: OMALIZUMAB
     Indication: Asthma
     Route: 058
     Dates: start: 20140929
  2. XOLAIR [Suspect]
     Active Substance: OMALIZUMAB
     Route: 058
     Dates: start: 2015
  3. XOLAIR [Suspect]
     Active Substance: OMALIZUMAB
     Dosage: UNK
     Route: 058
     Dates: start: 20151123
  4. XOLAIR [Suspect]
     Active Substance: OMALIZUMAB
     Dosage: UNK
     Route: 058
     Dates: start: 20151228
  5. XOLAIR [Suspect]
     Active Substance: OMALIZUMAB
     Dosage: UNK
     Route: 058
     Dates: start: 20160322
  6. XOLAIR [Suspect]
     Active Substance: OMALIZUMAB
     Dosage: UNK
     Route: 058
     Dates: start: 20160419
  7. XOLAIR [Suspect]
     Active Substance: OMALIZUMAB
     Dosage: UNK
     Route: 058
     Dates: start: 20160517
  8. XOLAIR [Suspect]
     Active Substance: OMALIZUMAB
     Dosage: UNK
     Route: 058
     Dates: start: 20160714
  9. XOLAIR [Suspect]
     Active Substance: OMALIZUMAB
     Dosage: UNK
     Route: 058
     Dates: start: 20160809
  10. XOLAIR [Suspect]
     Active Substance: OMALIZUMAB
     Dosage: UNK
     Route: 058
     Dates: start: 20160906
  11. XOLAIR [Suspect]
     Active Substance: OMALIZUMAB
     Dosage: UNK
     Route: 058
     Dates: start: 20161004
  12. XOLAIR [Suspect]
     Active Substance: OMALIZUMAB
     Route: 058
     Dates: start: 20161101
  13. XOLAIR [Suspect]
     Active Substance: OMALIZUMAB
     Route: 058
     Dates: start: 20161130
  14. XOLAIR [Suspect]
     Active Substance: OMALIZUMAB
     Dosage: UNK
     Route: 058
     Dates: start: 20170221
  15. XOLAIR [Suspect]
     Active Substance: OMALIZUMAB
     Dosage: UNK
     Route: 058
     Dates: start: 20170321
  16. XOLAIR [Suspect]
     Active Substance: OMALIZUMAB
     Dosage: UNK
     Route: 058
     Dates: start: 20170822
  17. XOLAIR [Suspect]
     Active Substance: OMALIZUMAB
     Dosage: UNK
     Route: 058
     Dates: start: 20171116
  18. XOLAIR [Suspect]
     Active Substance: OMALIZUMAB
     Route: 058
     Dates: start: 20180405
  19. XOLAIR [Suspect]
     Active Substance: OMALIZUMAB
     Route: 058
     Dates: start: 20180503
  20. XOLAIR [Suspect]
     Active Substance: OMALIZUMAB
     Route: 058
     Dates: start: 20180730
  21. XOLAIR [Suspect]
     Active Substance: OMALIZUMAB
     Route: 058
     Dates: start: 20180531
  22. XOLAIR [Suspect]
     Active Substance: OMALIZUMAB
     Route: 058
     Dates: start: 20180920
  23. XOLAIR [Suspect]
     Active Substance: OMALIZUMAB
     Route: 058
     Dates: start: 20181213
  24. XOLAIR [Suspect]
     Active Substance: OMALIZUMAB
     Route: 058
     Dates: start: 20190311
  25. XOLAIR [Suspect]
     Active Substance: OMALIZUMAB
     Route: 058
     Dates: start: 20171023
  26. XOLAIR [Suspect]
     Active Substance: OMALIZUMAB
     Route: 058
     Dates: start: 20190506
  27. XOLAIR [Suspect]
     Active Substance: OMALIZUMAB
     Route: 058
     Dates: start: 20190923
  28. XOLAIR [Suspect]
     Active Substance: OMALIZUMAB
     Route: 058
     Dates: start: 20191121
  29. XOLAIR [Suspect]
     Active Substance: OMALIZUMAB
     Route: 058
     Dates: start: 20200309
  30. XOLAIR [Suspect]
     Active Substance: OMALIZUMAB
     Route: 058
  31. XOLAIR [Suspect]
     Active Substance: OMALIZUMAB
     Route: 058
     Dates: start: 20210810
  32. XOLAIR [Suspect]
     Active Substance: OMALIZUMAB
     Route: 058
     Dates: start: 20220719
  33. XOLAIR [Suspect]
     Active Substance: OMALIZUMAB
     Route: 058
     Dates: start: 20220815
  34. XOLAIR [Suspect]
     Active Substance: OMALIZUMAB
     Route: 058
  35. XOLAIR [Suspect]
     Active Substance: OMALIZUMAB
     Route: 058
  36. XOLAIR [Suspect]
     Active Substance: OMALIZUMAB
     Route: 058
  37. XOLAIR [Suspect]
     Active Substance: OMALIZUMAB
     Route: 058
  38. XOLAIR [Suspect]
     Active Substance: OMALIZUMAB
     Route: 058
  39. XOLAIR [Suspect]
     Active Substance: OMALIZUMAB
     Route: 058
  40. XOLAIR [Suspect]
     Active Substance: OMALIZUMAB
     Route: 058
  41. XOLAIR [Suspect]
     Active Substance: OMALIZUMAB
     Route: 058
  42. XOLAIR [Suspect]
     Active Substance: OMALIZUMAB
     Route: 058
  43. XOLAIR [Suspect]
     Active Substance: OMALIZUMAB
     Route: 058
  44. XOLAIR [Suspect]
     Active Substance: OMALIZUMAB
     Route: 058
  45. XOLAIR [Suspect]
     Active Substance: OMALIZUMAB
     Route: 058
  46. XOLAIR [Suspect]
     Active Substance: OMALIZUMAB
     Route: 058
  47. XOLAIR [Suspect]
     Active Substance: OMALIZUMAB
     Route: 058
  48. XOLAIR [Suspect]
     Active Substance: OMALIZUMAB
     Route: 058
  49. XOLAIR [Suspect]
     Active Substance: OMALIZUMAB
     Route: 058
  50. XOLAIR [Suspect]
     Active Substance: OMALIZUMAB
     Route: 058
  51. XOLAIR [Suspect]
     Active Substance: OMALIZUMAB
     Route: 058
  52. XOLAIR [Suspect]
     Active Substance: OMALIZUMAB
     Route: 058
  53. XOLAIR [Suspect]
     Active Substance: OMALIZUMAB
     Route: 058
  54. XOLAIR [Suspect]
     Active Substance: OMALIZUMAB
     Route: 058
  55. XOLAIR [Suspect]
     Active Substance: OMALIZUMAB
     Route: 058
  56. XOLAIR [Suspect]
     Active Substance: OMALIZUMAB
     Route: 058
  57. XOLAIR [Suspect]
     Active Substance: OMALIZUMAB
     Route: 058
  58. XOLAIR [Suspect]
     Active Substance: OMALIZUMAB
     Route: 058
  59. XOLAIR [Suspect]
     Active Substance: OMALIZUMAB
     Route: 058
  60. XOLAIR [Suspect]
     Active Substance: OMALIZUMAB
     Route: 058
  61. XOLAIR [Suspect]
     Active Substance: OMALIZUMAB
     Route: 058
  62. XOLAIR [Suspect]
     Active Substance: OMALIZUMAB
     Route: 058
  63. XOLAIR [Suspect]
     Active Substance: OMALIZUMAB
     Route: 058
  64. XOLAIR [Suspect]
     Active Substance: OMALIZUMAB
     Route: 058
  65. XOLAIR [Suspect]
     Active Substance: OMALIZUMAB
     Route: 058
  66. XOLAIR [Suspect]
     Active Substance: OMALIZUMAB
     Route: 058
  67. XOLAIR [Suspect]
     Active Substance: OMALIZUMAB
     Route: 058
  68. XOLAIR [Suspect]
     Active Substance: OMALIZUMAB
     Route: 058
     Dates: start: 20231215
  69. ARIPIPRAZOLE [Suspect]
     Active Substance: ARIPIPRAZOLE
     Indication: Product used for unknown indication
     Route: 065
  70. MONTELUKAST SODIUM [Suspect]
     Active Substance: MONTELUKAST SODIUM
     Indication: Product used for unknown indication
     Route: 065
  71. ABILIFY [Suspect]
     Active Substance: ARIPIPRAZOLE
     Indication: Product used for unknown indication
     Route: 065
  72. INFLUENZA VIRUS VACCINE [Suspect]
     Active Substance: INFLUENZA VIRUS VACCINE
     Indication: Influenza
     Dosage: UNK
     Route: 065
  73. SULFAMETHIZOLE [Suspect]
     Active Substance: SULFAMETHIZOLE
     Indication: Product used for unknown indication
     Route: 065
  74. VENLAFAXINE [Suspect]
     Active Substance: VENLAFAXINE HYDROCHLORIDE
     Indication: Product used for unknown indication
     Route: 065
  75. MUPIROCIN [Suspect]
     Active Substance: MUPIROCIN
     Indication: Product used for unknown indication
     Route: 065
  76. MOXIFLOXACIN HYDROCHLORIDE [Concomitant]
     Active Substance: MOXIFLOXACIN HYDROCHLORIDE\MOXIFLOXACIN HYDROCHLORIDE MONOHYDRATE
     Indication: Product used for unknown indication
     Dosage: UNK
  77. GLYCOPYRROLATE [Concomitant]
     Active Substance: GLYCOPYRROLATE
     Indication: Asthma
     Dosage: 1 DF, UNK
     Route: 055
  78. GLYCOPYRROLATE [Concomitant]
     Active Substance: GLYCOPYRROLATE
     Dosage: 2 DF, QD
     Route: 055
  79. ZENHALE [Concomitant]
     Active Substance: FORMOTEROL FUMARATE\MOMETASONE FUROATE
     Indication: Product used for unknown indication
     Dosage: 2 DOSAGE FORM, QD
  80. ZENHALE [Concomitant]
     Active Substance: FORMOTEROL FUMARATE\MOMETASONE FUROATE
     Dosage: 2 DOSAGE FORM, QD 1-4 TIMES A DAY PRN
  81. FORMOTEROL FUMARATE [Concomitant]
     Active Substance: FORMOTEROL FUMARATE
     Indication: Product used for unknown indication
     Dosage: 2 DOSAGE FORM, QD
  82. FORMOTEROL FUMARATE [Concomitant]
     Active Substance: FORMOTEROL FUMARATE
     Dosage: 2 DOSAGE FORM, QID
  83. SINGULAIR [Concomitant]
     Active Substance: MONTELUKAST SODIUM
     Indication: Product used for unknown indication
     Dosage: 1 DF, QHS
     Route: 065
  84. VENTOLIN [Concomitant]
     Active Substance: ALBUTEROL SULFATE
     Indication: Product used for unknown indication
     Route: 065

REACTIONS (48)
  - Mental disorder [Not Recovered/Not Resolved]
  - Pneumonia [Not Recovered/Not Resolved]
  - Dysstasia [Not Recovered/Not Resolved]
  - Body temperature abnormal [Not Recovered/Not Resolved]
  - Weight decreased [Not Recovered/Not Resolved]
  - Blood pressure increased [Not Recovered/Not Resolved]
  - Migraine [Not Recovered/Not Resolved]
  - Seasonal allergy [Not Recovered/Not Resolved]
  - Rhinorrhoea [Not Recovered/Not Resolved]
  - Dysphonia [Not Recovered/Not Resolved]
  - Influenza [Not Recovered/Not Resolved]
  - Musculoskeletal stiffness [Not Recovered/Not Resolved]
  - Muscle disorder [Not Recovered/Not Resolved]
  - Sinus congestion [Not Recovered/Not Resolved]
  - Heart rate increased [Not Recovered/Not Resolved]
  - Oropharyngeal pain [Not Recovered/Not Resolved]
  - Vision blurred [Not Recovered/Not Resolved]
  - Humidity intolerance [Not Recovered/Not Resolved]
  - Ear pain [Not Recovered/Not Resolved]
  - Fall [Unknown]
  - Extrapyramidal disorder [Not Recovered/Not Resolved]
  - Concussion [Not Recovered/Not Resolved]
  - Neck pain [Not Recovered/Not Resolved]
  - Accident [Unknown]
  - Bronchitis [Not Recovered/Not Resolved]
  - Pulmonary mass [Not Recovered/Not Resolved]
  - Ligament sprain [Not Recovered/Not Resolved]
  - Dyspnoea [Not Recovered/Not Resolved]
  - Secretion discharge [Not Recovered/Not Resolved]
  - Nasal congestion [Not Recovered/Not Resolved]
  - Gait disturbance [Not Recovered/Not Resolved]
  - Pyrexia [Not Recovered/Not Resolved]
  - Wheezing [Not Recovered/Not Resolved]
  - Sinusitis [Not Recovered/Not Resolved]
  - Arthralgia [Not Recovered/Not Resolved]
  - Myalgia [Not Recovered/Not Resolved]
  - Dizziness [Not Recovered/Not Resolved]
  - Asthma [Recovering/Resolving]
  - Fatigue [Not Recovered/Not Resolved]
  - Drug hypersensitivity [Not Recovered/Not Resolved]
  - Sleep disorder due to general medical condition, insomnia type [Unknown]
  - Staphylococcal infection [Not Recovered/Not Resolved]
  - Nasal discharge discolouration [Not Recovered/Not Resolved]
  - Road traffic accident [Unknown]
  - Malaise [Not Recovered/Not Resolved]
  - Sneezing [Not Recovered/Not Resolved]
  - Headache [Not Recovered/Not Resolved]
  - Cough [Not Recovered/Not Resolved]

NARRATIVE: CASE EVENT DATE: 20150101
